FAERS Safety Report 6053245-1 (Version None)
Quarter: 2009Q1

REPORT INFORMATION
  Report Type: 
  Country: None (occurrence: None)
  Receive Date: 20090127
  Receipt Date: 20090112
  Transmission Date: 20090719
  Serious: Yes (Other)
  Sender: FDA-Public Use
  Company Number: US-AVENTIS-200815162US

PATIENT
  Sex: Female

DRUGS (7)
  1. KETEK [Suspect]
     Dosage: DOSE: UNK
     Dates: start: 20061211, end: 20061212
  2. KETEK [Suspect]
     Dosage: DOSE: UNK
     Dates: start: 20061211, end: 20061212
  3. KETEK [Suspect]
     Dosage: DOSE: UNK
     Dates: start: 20061211, end: 20061212
  4. TRAMADOL HCL [Concomitant]
  5. SKELAXIN [Concomitant]
  6. LEVOXYL [Concomitant]
  7. CYTOMEL [Concomitant]

REACTIONS (4)
  - ASPARTATE AMINOTRANSFERASE INCREASED [None]
  - ASTHENIA [None]
  - LIVER FUNCTION TEST ABNORMAL [None]
  - MENTAL IMPAIRMENT [None]
